FAERS Safety Report 18750907 (Version 1)
Quarter: 2021Q1

REPORT INFORMATION
  Report Type: Report from Study
  Country: CA (occurrence: CA)
  Receive Date: 20210118
  Receipt Date: 20210118
  Transmission Date: 20210419
  Serious: Yes (Other)
  Sender: FDA-Public Use
  Company Number: CA-JNJFOC-20191030851

PATIENT
  Age: 43 Year
  Sex: Female
  Weight: 77.11 kg

DRUGS (2)
  1. PLAQUENIL                          /00072602/ [Suspect]
     Active Substance: HYDROXYCHLOROQUINE DIPHOSPHATE
     Indication: PALINDROMIC RHEUMATISM
     Route: 065
     Dates: start: 20191130
  2. REMICADE [Suspect]
     Active Substance: INFLIXIMAB
     Indication: COLITIS ULCERATIVE
     Dosage: 5MG/KG DOSE.?PATIENT RECEIVED 10 REMICADE INFUSION TILL DATE, AT THE TIME OF REPORT.
     Route: 042
     Dates: start: 20190920

REACTIONS (8)
  - Infusion related reaction [Not Recovered/Not Resolved]
  - Nausea [Unknown]
  - Palindromic rheumatism [Unknown]
  - Malaise [Unknown]
  - Fatigue [Unknown]
  - Clostridium difficile infection [Recovered/Resolved]
  - Arthralgia [Recovered/Resolved]
  - Hypertension [Recovered/Resolved]

NARRATIVE: CASE EVENT DATE: 20191026
